FAERS Safety Report 21786157 (Version 1)
Quarter: 2022Q4

REPORT INFORMATION
  Report Type: Spontaneous
  Country: FR (occurrence: FR)
  Receive Date: 20221228
  Receipt Date: 20221228
  Transmission Date: 20230113
  Serious: Yes (Hospitalization, Other)
  Sender: FDA-Public Use
  Company Number: None

PATIENT
  Age: 55 Year
  Sex: Female
  Weight: 58 kg

DRUGS (2)
  1. ELIQUIS [Suspect]
     Active Substance: APIXABAN
     Indication: Pulmonary embolism
     Dosage: 10MG MATIN ET SOIR PENDANT 1 SEMAINE PUIS 5MG MATIN ET SOIR PENDANT 6 MOIS
     Route: 048
     Dates: start: 20221013, end: 20221015
  2. ACETAMINOPHEN\BELLADONNA LEAF\CAFFEINE\OPIUM [Suspect]
     Active Substance: ACETAMINOPHEN\BELLADONNA LEAF\CAFFEINE\OPIUM
     Indication: Pain
     Dosage: AU LONG COURS
     Route: 048
     Dates: end: 20221215

REACTIONS (2)
  - Pancreatitis acute [Unknown]
  - Hepatic cytolysis [Recovering/Resolving]

NARRATIVE: CASE EVENT DATE: 20221014
